FAERS Safety Report 9245248 (Version 1)
Quarter: 2013Q1

REPORT INFORMATION
  Report Type: Spontaneous
  Country: US (occurrence: None)
  Receive Date: 20121130
  Receipt Date: 20121130
  Transmission Date: 20140127
  Serious: Yes (Other)
  Sender: FDA-Public Use
  Company Number: 338318

PATIENT
  Age: 80 Year
  Sex: Male
  Weight: 79.38 kg

DRUGS (2)
  1. LEVEMIR FLEXPEN [Suspect]
     Indication: TYPE 2 DIABETES MELLITUS
     Dosage: 18 U, QAM, SUBCUTANEOUS
     Route: 058
     Dates: start: 20111020
  2. NOVOLOG FLEXPEN [Suspect]
     Indication: TYPE 2 DIABETES MELLITUS
     Dosage: SLIDING SCALE, SUBCUTANEOUS
     Route: 058
     Dates: start: 20111020

REACTIONS (2)
  - Blood glucose decreased [None]
  - Blood glucose increased [None]
